FAERS Safety Report 9070668 (Version 1)
Quarter: 2013Q1

REPORT INFORMATION
  Report Type: Spontaneous
  Country: CO (occurrence: CO)
  Receive Date: 20130129
  Receipt Date: 20130129
  Transmission Date: 20140127
  Serious: Yes (Death)
  Sender: FDA-Public Use
  Company Number: CO-ASTRAZENECA-2013SE05344

PATIENT
  Age: 2 Month
  Sex: 0
  Weight: 1 kg

DRUGS (1)
  1. SYNAGIS [Suspect]
     Indication: BRONCHOPULMONARY DYSPLASIA
     Route: 030
     Dates: start: 20121114, end: 20121114

REACTIONS (2)
  - Sepsis neonatal [Fatal]
  - Enterocolitis [Fatal]
